FAERS Safety Report 7319341-3 (Version None)
Quarter: 2011Q1

REPORT INFORMATION
  Report Type: 
  Country: None (occurrence: None)
  Receive Date: 20110228
  Receipt Date: 20100205
  Transmission Date: 20110831
  Serious: No
  Sender: FDA-Public Use
  Company Number: A0843244A

PATIENT
  Age: 23 Year
  Sex: Male

DRUGS (2)
  1. LAMICTAL [Suspect]
     Indication: BIPOLAR DISORDER
     Dosage: 125MG PER DAY
     Route: 048
  2. LITHIUM [Concomitant]

REACTIONS (1)
  - RASH [None]
